FAERS Safety Report 10203924 (Version 1)
Quarter: 2014Q2

REPORT INFORMATION
  Report Type: Spontaneous
  Country: CH (occurrence: None)
  Receive Date: 20140523
  Receipt Date: 20140523
  Transmission Date: 20141212
  Serious: Yes (Hospitalization)
  Sender: FDA-Public Use
  Company Number: 2014042681

PATIENT
  Sex: Female

DRUGS (5)
  1. OCTOSTIM [Suspect]
     Indication: HAEMORRHAGE PROPHYLAXIS
     Dates: start: 20140220, end: 20140222
  2. HAEMATE [Suspect]
     Indication: HAEMORRHAGE PROPHYLAXIS
     Dosage: 2000 IU TOTAL
  3. MOVIPREP [Suspect]
     Indication: COLONOSCOPY
     Route: 048
     Dates: start: 20140220, end: 20140220
  4. BELOC (METOPROLOL SUCCINATE) [Concomitant]
  5. CYKLOKAPRON (TRANEXAMIC ACID) [Concomitant]

REACTIONS (8)
  - Vertigo [None]
  - Nausea [None]
  - Vomiting [None]
  - Tremor [None]
  - Blood pressure systolic increased [None]
  - Dehydration [None]
  - Hyponatraemia [None]
  - Electrolyte imbalance [None]
